FAERS Safety Report 18570866 (Version 1)
Quarter: 2020Q4

REPORT INFORMATION
  Report Type: Spontaneous
  Country: US (occurrence: US)
  Receive Date: 20201202
  Receipt Date: 20201202
  Transmission Date: 20210114
  Serious: No
  Sender: FDA-Public Use
  Company Number: US-ROCHE-2681795

PATIENT
  Sex: Female

DRUGS (1)
  1. EVRYSDI [Suspect]
     Active Substance: RISDIPLAM
     Indication: SPINAL MUSCULAR ATROPHY
     Dosage: STARTED ON 8/31, TAKE AT 6PM, LYING DOWN, EVERY NIGHT
     Route: 065
     Dates: start: 20200831

REACTIONS (2)
  - Flatulence [Unknown]
  - Muscle spasms [Unknown]
